FAERS Safety Report 8964597 (Version 3)
Quarter: 2013Q2

REPORT INFORMATION
  Report Type: Spontaneous
  Country: DK (occurrence: DK)
  Receive Date: 20121214
  Receipt Date: 20130605
  Transmission Date: 20140414
  Serious: Yes (Life-Threatening, Hospitalization)
  Sender: FDA-Public Use
  Company Number: DK-JNJFOC-20121201743

PATIENT
  Age: 13 Year
  Sex: Male
  Weight: 55 kg

DRUGS (4)
  1. CONCERTA [Suspect]
     Indication: ATTENTION DEFICIT/HYPERACTIVITY DISORDER
     Route: 048
     Dates: start: 20120305, end: 20120831
  2. MEDIKINET [Suspect]
     Indication: ATTENTION DEFICIT/HYPERACTIVITY DISORDER
     Route: 065
     Dates: start: 20120418, end: 20120831
  3. RITALIN UNO [Suspect]
     Indication: ATTENTION DEFICIT/HYPERACTIVITY DISORDER
     Dosage: DAILY DOSE 20 MG TO 30 MG
     Route: 065
     Dates: start: 20120901, end: 20121120
  4. FLUOXETIN [Concomitant]
     Route: 065

REACTIONS (5)
  - Suicide attempt [Recovered/Resolved]
  - Depression [Recovered/Resolved]
  - Suicidal ideation [Unknown]
  - Depressed mood [Unknown]
  - Social avoidant behaviour [Unknown]
